FAERS Safety Report 4802085-7 (Version None)
Quarter: 2005Q4

REPORT INFORMATION
  Report Type: 
  Country: None (occurrence: None)
  Receive Date: 20051012
  Receipt Date: 20051003
  Transmission Date: 20060501
  Serious: Yes (Hospitalization, Disabling)
  Sender: FDA-Public Use
  Company Number: SU-2005-003748

PATIENT
  Age: 47 Year
  Sex: Male
  Weight: 71.2147 kg

DRUGS (1)
  1. BENICAR [Suspect]
     Indication: HYPERTENSION
     Dosage: 40 MG QD PO
     Route: 048
     Dates: start: 20041123, end: 20041218

REACTIONS (4)
  - CEREBRAL ARTERY OCCLUSION [None]
  - FALL [None]
  - HEMIPARESIS [None]
  - IMPAIRED WORK ABILITY [None]
